FAERS Safety Report 8796905 (Version 2)
Quarter: 2012Q4

REPORT INFORMATION
  Report Type: 
  Country: US (occurrence: US)
  Receive Date: 20120920
  Receipt Date: 20121002
  Transmission Date: 20130627
  Serious: Yes (Hospitalization, Other)
  Sender: FDA-Public Use
  Company Number: US-ELI_LILLY_AND_COMPANY-US201201007007

PATIENT
  Sex: Female
  Weight: 82.54 kg

DRUGS (18)
  1. BYETTA [Suspect]
     Indication: DIABETES MELLITUS
     Dosage: 5 ug, bid
     Route: 058
     Dates: start: 2005, end: 200804
  2. LANTUS [Concomitant]
     Indication: DIABETES MELLITUS
  3. HUMALOG [Concomitant]
     Indication: DIABETES MELLITUS
  4. AVANDIA [Concomitant]
     Indication: DIABETES MELLITUS
  5. DILAUDID [Concomitant]
     Dosage: 8 mg, tid
  6. DEMEROL [Concomitant]
     Dosage: 50 mg, qid
  7. DEMEROL [Concomitant]
     Dosage: 100 mg, qid
  8. PROCTOCREAM-HC [Concomitant]
  9. ULTRAM [Concomitant]
     Dosage: 50 mg, UNK
  10. ASACOL [Concomitant]
  11. FOLIC ACID [Concomitant]
     Dosage: 1 mg, qd
  12. NEURONTIN [Concomitant]
     Dosage: 800 mg, qid
  13. NEXIUM [Concomitant]
     Dosage: 40 mg, qd
  14. SYNTHROID [Concomitant]
     Dosage: 0.088 mg, qd
  15. ZOVIRAX                                 /GRC/ [Concomitant]
     Dosage: 800 mg, tid
  16. COUMADIN [Concomitant]
     Dosage: 3 mg, qd
  17. HYDROXYZINE HCL [Concomitant]
     Dosage: 25 mg, qid
  18. APIDRA [Concomitant]
     Dosage: 100 UNK, UNK

REACTIONS (2)
  - Pancreatitis [Not Recovered/Not Resolved]
  - Off label use [Recovered/Resolved]
